FAERS Safety Report 20257671 (Version 2)
Quarter: 2022Q1

REPORT INFORMATION
  Report Type: Spontaneous
  Country: PT (occurrence: PT)
  Receive Date: 20211230
  Receipt Date: 20220111
  Transmission Date: 20220423
  Serious: Yes (Life-Threatening, Other)
  Sender: FDA-Public Use
  Company Number: PT-Accord-246549

PATIENT
  Age: 72 Year
  Sex: Male

DRUGS (2)
  1. VINORELBINE [Suspect]
     Active Substance: VINORELBINE TARTRATE
     Indication: Chemotherapy
     Dosage: UNK
  2. CISPLATIN [Suspect]
     Active Substance: CISPLATIN
     Indication: Chemotherapy
     Dosage: UNK

REACTIONS (10)
  - Hyperglycaemic hyperosmolar nonketotic syndrome [Unknown]
  - Diabetic metabolic decompensation [Unknown]
  - Acute kidney injury [Unknown]
  - Polydipsia [Unknown]
  - Dysgeusia [Unknown]
  - Respiratory acidosis [Unknown]
  - Hyperlactacidaemia [Unknown]
  - Hyperglycaemia [Unknown]
  - Hypokalaemia [Unknown]
  - Metabolic acidosis [Unknown]
